FAERS Safety Report 9978116 (Version 2)
Quarter: 2014Q2

REPORT INFORMATION
  Report Type: Spontaneous
  Country: US (occurrence: US)
  Receive Date: 20140306
  Receipt Date: 20140408
  Transmission Date: 20141212
  Serious: No
  Sender: FDA-Public Use
  Company Number: US-PFIZER INC-2014064962

PATIENT
  Age: 76 Year
  Sex: Male
  Weight: 86.2 kg

DRUGS (2)
  1. LEVOTHYROXINE SODIUM [Suspect]
     Indication: THYROID HORMONE REPLACEMENT THERAPY
     Dosage: 50 UG, 1X/DAY
     Dates: start: 201303
  2. LEVOTHYROXINE SODIUM [Suspect]
     Dosage: 75 UG, 1X/DAY
     Dates: end: 201309

REACTIONS (1)
  - Dysgeusia [Not Recovered/Not Resolved]
